FAERS Safety Report 17502323 (Version 1)
Quarter: 2020Q1

REPORT INFORMATION
  Report Type: Spontaneous
  Country: US (occurrence: US)
  Receive Date: 20200305
  Receipt Date: 20200305
  Transmission Date: 20200409
  Serious: Yes (Hospitalization)
  Sender: FDA-Public Use
  Company Number: None

PATIENT
  Age: 48 Year
  Sex: Female

DRUGS (15)
  1. FOLIC ACID. [Concomitant]
     Active Substance: FOLIC ACID
  2. METHOTREXATE. [Concomitant]
     Active Substance: METHOTREXATE
  3. AMITRIPTYLINE [Concomitant]
     Active Substance: AMITRIPTYLINE
  4. BACLOFEN. [Concomitant]
     Active Substance: BACLOFEN
  5. PREMARIN [Concomitant]
     Active Substance: ESTROGENS, CONJUGATED
  6. HUMIRA [Suspect]
     Active Substance: ADALIMUMAB
     Indication: RHEUMATOID ARTHRITIS
     Dosage: ?          OTHER FREQUENCY:EVERY 14 DAYS;?
     Route: 058
     Dates: start: 20191122
  7. DIAZEPAM. [Concomitant]
     Active Substance: DIAZEPAM
  8. DOK CAP 100MG [Concomitant]
  9. MORPHINE [Concomitant]
     Active Substance: MORPHINE
  10. PANTOPRAZOLE [Concomitant]
     Active Substance: PANTOPRAZOLE
  11. OXYCODONE AND ACETAMINOPHEN [Concomitant]
     Active Substance: ACETAMINOPHEN\OXYCODONE HYDROCHLORIDE
  12. DULOXETINE. [Concomitant]
     Active Substance: DULOXETINE
  13. ONDANSETRON [Concomitant]
     Active Substance: ONDANSETRON
  14. TRAMADOL. [Concomitant]
     Active Substance: TRAMADOL
  15. TRAZODONE [Concomitant]
     Active Substance: TRAZODONE HYDROCHLORIDE

REACTIONS (2)
  - Rheumatoid arthritis [None]
  - Arthralgia [None]

NARRATIVE: CASE EVENT DATE: 20200131
